FAERS Safety Report 7743614-3 (Version None)
Quarter: 2011Q3

REPORT INFORMATION
  Report Type: 
  Country: None (occurrence: None)
  Receive Date: 20110912
  Receipt Date: 20110830
  Transmission Date: 20111222
  Serious: Yes (Other)
  Sender: FDA-Public Use
  Company Number: US-JNJFOC-20110900726

PATIENT
  Age: 74 Year
  Sex: Female
  Weight: 55.34 kg

DRUGS (9)
  1. LEVOTHYROXINE SODIUM [Concomitant]
     Indication: THYROID DISORDER
     Route: 065
     Dates: start: 20110801
  2. SIMVASTATIN [Concomitant]
     Indication: BLOOD CHOLESTEROL ABNORMAL
     Route: 065
     Dates: start: 20090101
  3. SYMBICORT [Concomitant]
     Indication: ASTHMA
     Dosage: 2-4 TIMES A DAY
     Route: 065
     Dates: start: 20110801
  4. LISINOPRIL [Concomitant]
     Indication: BLOOD PRESSURE
     Route: 065
     Dates: start: 20100101
  5. THEOPHYLLINE [Concomitant]
     Indication: CARDIAC DISORDER
     Route: 065
     Dates: start: 20110301
  6. NEUTROGENA T/GEL THERAPEUTIC SHAMPOO [Suspect]
     Indication: PRODUCT USED FOR UNKNOWN INDICATION
     Dosage: NICKEL SIZED DOSE
     Route: 061
     Dates: start: 20110828, end: 20110828
  7. NITROGLYCERIN [Concomitant]
     Indication: CARDIAC DISORDER
     Route: 065
     Dates: start: 20090101
  8. ASPIRIN [Concomitant]
     Indication: CARDIAC DISORDER
     Route: 065
     Dates: start: 20090101
  9. ALBUTEROL SULPHATE [Concomitant]
     Indication: ASTHMA
     Route: 065
     Dates: start: 20110501

REACTIONS (3)
  - PRODUCT QUALITY ISSUE [None]
  - DYSPNOEA [None]
  - HYPERSENSITIVITY [None]
